FAERS Safety Report 5139655-5 (Version None)
Quarter: 2006Q4

REPORT INFORMATION
  Report Type: 
  Country: None (occurrence: None)
  Receive Date: 20061024
  Receipt Date: 20061012
  Transmission Date: 20070319
  Serious: No
  Sender: FDA-Public Use
  Company Number: 14809

PATIENT
  Age: 56 Year
  Sex: Female
  Weight: 65 kg

DRUGS (7)
  1. PAMIDRONATE DISODIUM [Suspect]
     Indication: HYPERCALCAEMIA
     Dosage: 90 MG ONCE IV
     Route: 042
     Dates: start: 20060819, end: 20060819
  2. PAMIDRONATE DISODIUM [Suspect]
     Indication: HYPERCALCAEMIA
     Dosage: 90 MG ONCE IV
     Route: 042
     Dates: start: 20060819, end: 20060819
  3. PAMIDRONATE DISODIUM [Suspect]
     Indication: HYPERCALCAEMIA
     Dosage: 30 MG ONCE IV
     Route: 042
     Dates: start: 20060831, end: 20060831
  4. PAMIDRONATE DISODIUM [Suspect]
     Indication: HYPERCALCAEMIA
     Dosage: 15 MG ONCE IV
     Route: 042
     Dates: start: 20060903, end: 20060903
  5. MEGESTROL ACETATE [Concomitant]
  6. EXEMESTANE [Concomitant]
  7. MORPHINE SUL INJ [Concomitant]

REACTIONS (2)
  - HYPERCALCAEMIA [None]
  - INCORRECT DRUG ADMINISTRATION RATE [None]
